FAERS Safety Report 14403509 (Version 1)
Quarter: 2018Q1

REPORT INFORMATION
  Report Type: Spontaneous
  Country: AU (occurrence: AU)
  Receive Date: 20180117
  Receipt Date: 20180117
  Transmission Date: 20180509
  Serious: Yes (Congenital Anomaly, Other)
  Sender: FDA-Public Use
  Company Number: AU-PFIZER INC-2018018443

PATIENT
  Sex: Male

DRUGS (1)
  1. ZOLOFT [Suspect]
     Active Substance: SERTRALINE HYDROCHLORIDE
     Dosage: UNK
     Route: 064
     Dates: start: 2007

REACTIONS (5)
  - Maternal exposure during pregnancy [Unknown]
  - Tympanic membrane perforation [Unknown]
  - Ear infection [Unknown]
  - Cleft palate [Unknown]
  - Deafness [Unknown]
